FAERS Safety Report 4818550-2 (Version None)
Quarter: 2005Q4

REPORT INFORMATION
  Report Type: 
  Country: None (occurrence: None)
  Receive Date: 20051031
  Receipt Date: 20051017
  Transmission Date: 20060501
  Serious: Yes (Hospitalization, Other)
  Sender: FDA-Public Use
  Company Number: 2005124803

PATIENT
  Age: 71 Year
  Sex: Female

DRUGS (6)
  1. DETROL LA [Suspect]
     Indication: HYPERTONIC BLADDER
     Dosage: 4 MG (4 MG, 1 IN 1 D), ORAL
     Route: 048
     Dates: start: 20000101
  2. NEXIUM [Suspect]
     Indication: GASTROOESOPHAGEAL REFLUX DISEASE
     Dates: end: 20050501
  3. ALL OTHER THERAPEUTIC PRODUCTS (ALL OTHER THERAPEUTIC PRODUCTS) [Suspect]
     Indication: URGE INCONTINENCE
  4. PRILOSEC [Concomitant]
  5. PREMARIN [Concomitant]
  6. TEVETEN HCT (EPROSARTAN MESILATE, HYDROCHLOROTHIAZIDE) [Concomitant]

REACTIONS (9)
  - CONSTIPATION [None]
  - DRUG HYPERSENSITIVITY [None]
  - EUSTACHIAN TUBE DISORDER [None]
  - HEADACHE [None]
  - OSTEOPOROSIS [None]
  - OTITIS MEDIA [None]
  - TYMPANIC MEMBRANE DISORDER [None]
  - VAGINAL CYST [None]
  - WEIGHT DECREASED [None]
